FAERS Safety Report 6244798-9 (Version None)
Quarter: 2009Q2

REPORT INFORMATION
  Report Type: 
  Country: None (occurrence: None)
  Receive Date: 20090619
  Receipt Date: 20090420
  Transmission Date: 20091009
  Serious: No
  Sender: FDA-Public Use
  Company Number: ALL1-2009-01050

PATIENT
  Age: 38 Year
  Sex: Female
  Weight: 64.4 kg

DRUGS (3)
  1. VYVANSE [Suspect]
     Indication: ATTENTION DEFICIT/HYPERACTIVITY DISORDER
     Dosage: 50 MG, 1X/DAY:QD, ORAL : 70 MG, 1X/DAY:QD, ORAL
     Route: 048
     Dates: start: 20090301, end: 20090401
  2. VYVANSE [Suspect]
     Indication: ATTENTION DEFICIT/HYPERACTIVITY DISORDER
     Dosage: 50 MG, 1X/DAY:QD, ORAL : 70 MG, 1X/DAY:QD, ORAL
     Route: 048
     Dates: start: 20090401
  3. ABILIFY [Concomitant]

REACTIONS (2)
  - CONFUSIONAL STATE [None]
  - DRUG INEFFECTIVE [None]
